FAERS Safety Report 10398292 (Version 1)
Quarter: 2014Q3

REPORT INFORMATION
  Report Type: Spontaneous
  Country: US (occurrence: None)
  Receive Date: 20140819
  Receipt Date: 20140819
  Transmission Date: 20150326
  Serious: Yes (Hospitalization)
  Sender: FDA-Public Use
  Company Number: FK201403321

PATIENT
  Age: 13 Year
  Sex: Male

DRUGS (10)
  1. TIOGUANINE (METHOTREXATE) [Concomitant]
  2. CYTARABINE. [Concomitant]
     Active Substance: CYTARABINE
  3. MESNA. [Concomitant]
     Active Substance: MESNA
  4. VINCRISTINE (VINCRISTINE) (VINCRISTINE) [Suspect]
     Active Substance: VINCRISTINE
     Indication: T-CELL TYPE ACUTE LEUKAEMIA
  5. CYCLOPHOSPHAMIDE (MANUFACTURER UNKNOWN) (CYCLOPHOSPHAMIDE) (CYCLOPHOSPHAMIDE) [Suspect]
     Active Substance: CYCLOPHOSPHAMIDE
     Indication: T-CELL TYPE ACUTE LEUKAEMIA
  6. GLUCOCORTICOIDS [Concomitant]
     Active Substance: UNSPECIFIED INGREDIENT
  7. DEXAMETHASONE. [Suspect]
     Active Substance: DEXAMETHASONE
     Indication: T-CELL TYPE ACUTE LEUKAEMIA
  8. TIOGUANINE [Concomitant]
     Active Substance: THIOGUANINE ANHYDROUS
  9. DAUNORUBICIN [Concomitant]
     Active Substance: DAUNORUBICIN
  10. NELARABINE [Concomitant]
     Active Substance: NELARABINE

REACTIONS (2)
  - Neutropenic colitis [None]
  - Liver iron concentration increased [None]
